FAERS Safety Report 17288404 (Version 2)
Quarter: 2020Q1

REPORT INFORMATION
  Report Type: Spontaneous
  Country: CA (occurrence: CA)
  Receive Date: 20200120
  Receipt Date: 20200220
  Transmission Date: 20200409
  Serious: Yes (Other)
  Sender: FDA-Public Use
  Company Number: CA-ABBVIE-16K-028-3059576-00

PATIENT
  Age: 69 Year
  Sex: Male

DRUGS (2)
  1. IMBRUVICA [Suspect]
     Active Substance: IBRUTINIB
     Indication: CHRONIC LYMPHOCYTIC LEUKAEMIA
     Route: 048
  2. HEPARIN LMW [Suspect]
     Active Substance: UNSPECIFIED INGREDIENT
     Indication: SPLENIC VEIN THROMBOSIS
     Route: 065

REACTIONS (6)
  - Hypoacusis [Recovered/Resolved]
  - Ear haemorrhage [Recovered/Resolved]
  - Drug ineffective [Recovered/Resolved]
  - Contusion [Recovered/Resolved]
  - Splenic vein thrombosis [Recovered/Resolved]
  - Nail bed bleeding [Recovered/Resolved]
